FAERS Safety Report 4437166-3 (Version None)
Quarter: 2004Q3

REPORT INFORMATION
  Report Type: 
  Country: None (occurrence: None)
  Receive Date: 20040830
  Receipt Date: 20040607
  Transmission Date: 20050211
  Serious: Yes (Other)
  Sender: FDA-Public Use
  Company Number: PHBS2004BR07615

PATIENT
  Age: 20 Year
  Sex: Male
  Weight: 55 kg

DRUGS (3)
  1. MELLARIL [Suspect]
     Indication: SCHIZOPHRENIA
     Dosage: 25 MG, QHS
     Route: 048
     Dates: start: 20031201, end: 20040525
  2. MELLARIL [Suspect]
     Dosage: 50 MG, QD
     Route: 048
     Dates: start: 20040704
  3. FLUOXETINE [Concomitant]
     Indication: DEPRESSION
     Dosage: 10 MG/D
     Route: 048

REACTIONS (8)
  - AGGRESSION [None]
  - ANXIETY [None]
  - ARRHYTHMIA [None]
  - BREAST PAIN [None]
  - BREAST SWELLING [None]
  - CONSTIPATION [None]
  - RASH [None]
  - RESTLESSNESS [None]
